FAERS Safety Report 9555495 (Version 1)
Quarter: 2013Q3

REPORT INFORMATION
  Report Type: Spontaneous
  Country: US (occurrence: None)
  Receive Date: 20130815
  Receipt Date: 20130815
  Transmission Date: 20140515
  Serious: Yes (Life-Threatening, Hospitalization, Other)
  Sender: FDA-Public Use
  Company Number: ADR-2012-01723

PATIENT
  Age: 20 Year
  Sex: Male

DRUGS (2)
  1. LIORESAL [Suspect]
     Indication: MUSCLE SPASTICITY
  2. LIORESAL [Suspect]
     Indication: CEREBRAL PALSY

REACTIONS (6)
  - Hyperhidrosis [None]
  - Drug withdrawal syndrome [None]
  - Hypertension [None]
  - Muscle spasticity [None]
  - Tachycardia [None]
  - Tremor [None]
